FAERS Safety Report 4340098-2 (Version None)
Quarter: 2004Q2

REPORT INFORMATION
  Report Type: 
  Country: None (occurrence: None)
  Receive Date: 20040412
  Receipt Date: 20040330
  Transmission Date: 20050107
  Serious: Yes (Death, Life-Threatening)
  Sender: FDA-Public Use
  Company Number: 2004AP01954

PATIENT
  Age: 63 Year
  Sex: Female
  Weight: 54 kg

DRUGS (9)
  1. IRESSA [Suspect]
     Indication: NON-SMALL CELL LUNG CANCER
     Dosage: 250 MG DAILY PO
     Route: 048
     Dates: start: 20031218, end: 20040105
  2. VALTRAN [Concomitant]
  3. PLENDIL [Concomitant]
  4. COAPROVEL [Concomitant]
  5. SELOZOK [Concomitant]
  6. TAXOTERE [Concomitant]
  7. CISPLATIN [Concomitant]
  8. GEMCITABINE [Concomitant]
  9. RADIOTHERAPY [Concomitant]

REACTIONS (5)
  - ACUTE RESPIRATORY DISTRESS SYNDROME [None]
  - INTERSTITIAL LUNG DISEASE [None]
  - MALIGNANT NEOPLASM PROGRESSION [None]
  - NON-SMALL CELL LUNG CANCER [None]
  - VOMITING [None]
